FAERS Safety Report 9886860 (Version 1)
Quarter: 2014Q1

REPORT INFORMATION
  Report Type: Report from Study
  Country: US (occurrence: US)
  Receive Date: 20140210
  Receipt Date: 20140210
  Transmission Date: 20141002
  Serious: Yes (Hospitalization)
  Sender: FDA-Public Use
  Company Number: US-ABBVIE-14P-163-1196740-00

PATIENT
  Age: 21 Year
  Sex: Male

DRUGS (4)
  1. HUMIRA [Suspect]
     Indication: CROHN^S DISEASE
     Dates: start: 20131112
  2. HYDROCODONE [Concomitant]
     Indication: SLEEP DISORDER
     Dosage: 5/500 MG AS NEEDED
  3. PREDNISONE [Concomitant]
     Indication: PRODUCT USED FOR UNKNOWN INDICATION
  4. IRON [Concomitant]
     Indication: MINERAL SUPPLEMENTATION

REACTIONS (4)
  - Gastritis [Recovering/Resolving]
  - Abdominal pain [Recovering/Resolving]
  - Gastrointestinal inflammation [Recovering/Resolving]
  - Crohn^s disease [Recovering/Resolving]
